FAERS Safety Report 10069449 (Version 1)
Quarter: 2014Q2

REPORT INFORMATION
  Report Type: Spontaneous
  Country: US (occurrence: US)
  Receive Date: 20140410
  Receipt Date: 20140410
  Transmission Date: 20141212
  Serious: No
  Sender: FDA-Public Use
  Company Number: US-TEVA-389665USA

PATIENT
  Sex: Female

DRUGS (1)
  1. ZIAC [Suspect]

REACTIONS (3)
  - Blood pressure diastolic increased [Unknown]
  - Wrong technique in drug usage process [Unknown]
  - Incorrect dose administered [Unknown]
